FAERS Safety Report 9203671 (Version 2)
Quarter: 2013Q2

REPORT INFORMATION
  Report Type: Spontaneous
  Country: US (occurrence: US)
  Receive Date: 20130402
  Receipt Date: 20130426
  Transmission Date: 20140414
  Serious: Yes (Other)
  Sender: FDA-Public Use
  Company Number: US-PFIZER INC-2013102198

PATIENT
  Age: 48 Year
  Sex: Female
  Weight: 81.63 kg

DRUGS (2)
  1. LYRICA [Suspect]
     Indication: ABDOMINAL PAIN UPPER
     Dosage: 100 MG, 3X/DAY
     Dates: start: 2011, end: 201303
  2. NEURONTIN [Suspect]
     Indication: MYALGIA
     Dosage: 600 MG, 3X/DAY
     Dates: start: 201203

REACTIONS (2)
  - Weight increased [Unknown]
  - Off label use [Unknown]
